FAERS Safety Report 9846497 (Version 1)
Quarter: 2014Q1

REPORT INFORMATION
  Report Type: Report from Study
  Country: US (occurrence: US)
  Receive Date: 20140127
  Receipt Date: 20140127
  Transmission Date: 20141002
  Serious: Yes (Hospitalization)
  Sender: FDA-Public Use
  Company Number: PHEH2014US001710

PATIENT
  Sex: Male
  Weight: 104.31 kg

DRUGS (6)
  1. TASIGNA [Suspect]
     Indication: CHRONIC MYELOID LEUKAEMIA
     Dosage: 400 MG, BID
     Route: 048
  2. VITAMIN D [Concomitant]
     Dosage: 1000 U, UNK
  3. B COMPLEX [Concomitant]
  4. VALTREX [Concomitant]
     Dosage: 1 G, UNK
  5. LISINOPRIL [Concomitant]
     Dosage: 10 MG, UNK
  6. AMLODIPINE [Concomitant]
     Dosage: 10 MG, UNK

REACTIONS (1)
  - Herpes zoster [Unknown]
